FAERS Safety Report 10047064 (Version 1)
Quarter: 2014Q1

REPORT INFORMATION
  Report Type: Spontaneous
  Country: US (occurrence: US)
  Receive Date: 20140331
  Receipt Date: 20140331
  Transmission Date: 20141002
  Serious: No
  Sender: FDA-Public Use
  Company Number: US-MYLANLABS-2013S1004753

PATIENT
  Age: 33 Year
  Sex: Female
  Weight: 111.13 kg

DRUGS (10)
  1. FENTANYL TRANSDERMAL SYSTEM [Suspect]
     Indication: FIBROMYALGIA
     Dosage: Q72HR
     Route: 062
     Dates: start: 20130221
  2. ZOFRAN [Concomitant]
     Indication: NAUSEA
  3. FIORICET [Concomitant]
     Indication: MIGRAINE
  4. KLONOPIN [Concomitant]
     Indication: ANXIETY
  5. BENTYL [Concomitant]
     Route: 048
  6. LEXAPRO [Concomitant]
     Indication: DEPRESSION
  7. ZANAFLEX [Concomitant]
     Indication: MUSCLE RELAXANT THERAPY
  8. SYNTHYROID [Concomitant]
     Indication: HYPOTHYROIDISM
  9. AMBIEN [Concomitant]
     Indication: INSOMNIA
  10. CETIRIZINE [Concomitant]
     Indication: MULTIPLE ALLERGIES

REACTIONS (4)
  - Migraine [Not Recovered/Not Resolved]
  - Nausea [Recovered/Resolved]
  - Vomiting [Recovered/Resolved]
  - Drooling [Not Recovered/Not Resolved]
